FAERS Safety Report 5190467-6 (Version None)
Quarter: 2006Q4

REPORT INFORMATION
  Report Type: 
  Country: None (occurrence: None)
  Receive Date: 20061222
  Receipt Date: 20061215
  Transmission Date: 20070319
  Serious: Yes (Hospitalization, Other)
  Sender: FDA-Public Use
  Company Number: US-ELI_LILLY_AND_COMPANY-US200612003059

PATIENT
  Age: 54 Year
  Sex: Male

DRUGS (5)
  1. PROZAC [Suspect]
     Indication: ATTENTION DEFICIT/HYPERACTIVITY DISORDER
     Dosage: 20MG, UNK
     Route: 048
     Dates: start: 19910101, end: 20060101
  2. PROZAC [Suspect]
     Dosage: 40 MG, UNK
     Route: 048
     Dates: start: 20060101
  3. WARFARIN SODIUM [Concomitant]
  4. LEVOXINE [Concomitant]
  5. QUINAPRIL HCL [Concomitant]

REACTIONS (7)
  - ATRIAL FIBRILLATION [None]
  - ATTENTION DEFICIT/HYPERACTIVITY DISORDER [None]
  - CARPAL TUNNEL DECOMPRESSION [None]
  - JOINT INJURY [None]
  - JOINT RECONSTRUCTION [None]
  - SPINAL FUSION SURGERY [None]
  - THYROID CYST [None]
